FAERS Safety Report 6200575-6 (Version None)
Quarter: 2009Q2

REPORT INFORMATION
  Report Type: 
  Country: None (occurrence: None)
  Receive Date: 20090522
  Receipt Date: 20090512
  Transmission Date: 20091009
  Serious: Yes (Other)
  Sender: FDA-Public Use
  Company Number: FR-AMGEN-US348173

PATIENT
  Age: 40 Year
  Sex: Male

DRUGS (7)
  1. ENBREL [Suspect]
     Indication: PSORIASIS
  2. ENBREL [Suspect]
     Indication: ANKYLOSING SPONDYLITIS
  3. REMICADE [Suspect]
     Indication: PSORIASIS
     Dosage: SIX INFUSIONS OF 5MG/KG ADMINISTERED EVERY EIGHT WEEKS
     Route: 042
  4. REMICADE [Suspect]
     Indication: ANKYLOSING SPONDYLITIS
     Dosage: THREE INFUSIONS OF 5MG/KG EVERY 6 WEEKS
     Route: 042
  5. REMICADE [Suspect]
     Dosage: SIX WEEKS AFTER TREATMENT, DOSE WAS DOUBLED TO 10MG/KG (TOTAL CUMULATIVE DOSE 4200MG)
  6. HUMIRA [Suspect]
     Indication: PSORIASIS
  7. HUMIRA [Suspect]
     Indication: ANKYLOSING SPONDYLITIS

REACTIONS (1)
  - DEMYELINATING POLYNEUROPATHY [None]
